FAERS Safety Report 23364892 (Version 1)
Quarter: 2024Q1

REPORT INFORMATION
  Report Type: Spontaneous
  Country: US (occurrence: US)
  Receive Date: 20240104
  Receipt Date: 20240104
  Transmission Date: 20240410
  Serious: Yes (Other)
  Sender: FDA-Public Use
  Company Number: US-AUROBINDO-AUR-APL-2023-081670

PATIENT
  Age: 56 Year
  Sex: Male

DRUGS (3)
  1. CEPHALEXIN [Suspect]
     Active Substance: CEPHALEXIN
     Indication: Localised infection
     Dosage: UNK
     Route: 048
  2. CEPHALEXIN [Suspect]
     Active Substance: CEPHALEXIN
     Indication: Micrococcus infection
  3. CEPHALEXIN [Suspect]
     Active Substance: CEPHALEXIN
     Indication: Bacteraemia

REACTIONS (1)
  - Drug ineffective [Unknown]
